FAERS Safety Report 7375149 (Version 7)
Quarter: 2013Q2

REPORT INFORMATION
  Report Type: Spontaneous
  Country: US (occurrence: US)
  Receive Date: 20100503
  Receipt Date: 20130624
  Transmission Date: 20140414
  Serious: No
  Sender: FDA-Public Use
  Company Number: US-ASTRAZENECA-2009UW10079

PATIENT
  Age: 62 Year
  Sex: Female

DRUGS (1)
  1. NEXIUM [Suspect]
     Route: 048
     Dates: start: 200904

REACTIONS (10)
  - Bone density decreased [Unknown]
  - Therapeutic response unexpected [Unknown]
  - Vitamin D deficiency [Unknown]
  - Post-traumatic stress disorder [Unknown]
  - Agoraphobia [Unknown]
  - Atypical pneumonia [Unknown]
  - Dyspnoea [Unknown]
  - Magnesium deficiency [Unknown]
  - Malaise [Unknown]
  - Intentional drug misuse [Unknown]
